FAERS Safety Report 18960723 (Version 2)
Quarter: 2021Q4

REPORT INFORMATION
  Report Type: Other
  Country: US (occurrence: US)
  Receive Date: 20210302
  Receipt Date: 20211008
  Transmission Date: 20220303
  Serious: Yes (Other)
  Sender: FDA-Public Use
  Company Number: US-ROCHE-2770582

PATIENT

DRUGS (7)
  1. BEVACIZUMAB [Suspect]
     Active Substance: BEVACIZUMAB
     Indication: Colorectal cancer
     Route: 042
  2. CETUXIMAB [Suspect]
     Active Substance: CETUXIMAB
     Indication: Colorectal cancer
     Route: 042
  3. LEUCOVORIN [Suspect]
     Active Substance: LEUCOVORIN
     Indication: Colorectal cancer
     Route: 065
  4. LEUCOVORIN CALCIUM [Suspect]
     Active Substance: LEUCOVORIN CALCIUM
     Indication: Colorectal cancer
     Route: 065
  5. FLUOROURACIL [Suspect]
     Active Substance: FLUOROURACIL
     Indication: Colorectal cancer
     Route: 065
  6. IRINOTECAN [Suspect]
     Active Substance: IRINOTECAN
     Indication: Colorectal cancer
     Route: 065
  7. OXALIPLATIN [Suspect]
     Active Substance: OXALIPLATIN
     Indication: Colorectal cancer
     Route: 065

REACTIONS (40)
  - Diarrhoea [Unknown]
  - Fatigue [Unknown]
  - Nausea [Unknown]
  - Abdominal pain [Unknown]
  - Decreased appetite [Unknown]
  - Vomiting [Unknown]
  - Anaemia [Unknown]
  - Pruritus [Unknown]
  - Back pain [Unknown]
  - Aspartate aminotransferase increased [Unknown]
  - Alanine aminotransferase increased [Unknown]
  - Blood alkaline phosphatase increased [Unknown]
  - Rash [Unknown]
  - Abdominal pain upper [Unknown]
  - Asthenia [Unknown]
  - Hypertension [Unknown]
  - Pain in extremity [Unknown]
  - Oedema peripheral [Unknown]
  - Urinary tract infection [Unknown]
  - Hypokalaemia [Unknown]
  - Stomatitis [Unknown]
  - Mucosal inflammation [Unknown]
  - Weight decreased [Unknown]
  - Peripheral sensory neuropathy [Unknown]
  - Neutrophil count decreased [Unknown]
  - Neutropenia [Unknown]
  - Neuropathy peripheral [Unknown]
  - Palmar-plantar erythrodysaesthesia syndrome [Unknown]
  - White blood cell count decreased [Unknown]
  - Infusion related reaction [Unknown]
  - Skin reaction [Unknown]
  - Hyponatraemia [Unknown]
  - Gamma-glutamyltransferase increased [Unknown]
  - Febrile neutropenia [Unknown]
  - Embolism [Unknown]
  - Dehydration [Unknown]
  - Pulmonary embolism [Unknown]
  - Small intestinal obstruction [Unknown]
  - Pneumonia [Unknown]
  - Hyperglycaemia [Unknown]
